FAERS Safety Report 5868569-8 (Version None)
Quarter: 2008Q3

REPORT INFORMATION
  Report Type: 
  Country: None (occurrence: None)
  Receive Date: 20080902
  Receipt Date: 20080902
  Transmission Date: 20090109
  Serious: Yes (Life-Threatening, Hospitalization)
  Sender: FDA-Public Use
  Company Number: None

PATIENT
  Age: 62 Year
  Sex: Male
  Weight: 77.1115 kg

DRUGS (1)
  1. CAPTOPRIL [Suspect]
     Indication: HYPERTENSION
     Dosage: 1 TABLET BID PO
     Route: 048
     Dates: start: 20040101, end: 20080830

REACTIONS (2)
  - LIP SWELLING [None]
  - TONGUE OEDEMA [None]
